FAERS Safety Report 4653052-8 (Version None)
Quarter: 2005Q2

REPORT INFORMATION
  Report Type: 
  Country: None (occurrence: None)
  Receive Date: 20050505
  Receipt Date: 20050413
  Transmission Date: 20051028
  Serious: Yes (Disabling)
  Sender: FDA-Public Use
  Company Number: US-MERCK-0504USA02246

PATIENT
  Sex: Female

DRUGS (1)
  1. MEVACOR [Suspect]
     Route: 048

REACTIONS (2)
  - FEELING ABNORMAL [None]
  - MUSCULAR WEAKNESS [None]
